FAERS Safety Report 25689286 (Version 1)
Quarter: 2025Q3

REPORT INFORMATION
  Report Type: Spontaneous
  Country: EU (occurrence: EU)
  Receive Date: 20250818
  Receipt Date: 20250818
  Transmission Date: 20251021
  Serious: Yes (Other)
  Sender: Unknown Manufacturer
  Company Number: EU-862174955-ML2025-04068

PATIENT
  Age: 74 Year
  Sex: Male

DRUGS (8)
  1. GLIMEPIRIDE [Suspect]
     Active Substance: GLIMEPIRIDE
     Indication: Diabetes mellitus
     Dosage: ONCE DAILY FOR 15 YEARS
  2. METFORMIN [Suspect]
     Active Substance: METFORMIN HYDROCHLORIDE
     Indication: Diabetes mellitus
     Dosage: THREE TIMES A DAY FOR 15 YEARS
  3. LOSARTAN POTASSIUM AND HYDROCHLOROTHIAZIDE [Suspect]
     Active Substance: HYDROCHLOROTHIAZIDE\LOSARTAN POTASSIUM
     Indication: Hypertension
     Dosage: 50/12.5 MG ONCE DAILY IN THE MORNING FOR OVER 10 YEARS
  4. NIFEDIPINE [Suspect]
     Active Substance: NIFEDIPINE
     Indication: Hypertension
     Dosage: 20 MG TWICE DAILY-ONCE IN THE MORNING AND ONCE IN THE EVENING FOR OVER 10 YEARS
  5. MOXONIDINE [Suspect]
     Active Substance: MOXONIDINE
     Indication: Hypertension
     Dosage: 0.2 MG TWICE DAILY-ONCE IN THE  MORNING AND ONCE IN THE EVENING FOR OVER 5 YEARS
  6. METOPROLOL TARTRATE [Suspect]
     Active Substance: METOPROLOL TARTRATE
     Indication: Hypertension
     Dosage: 50 MG HALF A TABLET ONCE DAILY FOR THE PAST 3 YEARS
  7. PENTOXIFYLLINE [Concomitant]
     Active Substance: PENTOXIFYLLINE
     Indication: Diabetes mellitus
     Dosage: ADMINISTERED FOR 20 YEARS
  8. THIOCTIC ACID [Concomitant]
     Active Substance: THIOCTIC ACID
     Indication: Diabetes mellitus
     Dosage: ADMINISTERED FOR 20 YEARS

REACTIONS (3)
  - Basal cell carcinoma [Unknown]
  - Skin squamous cell carcinoma recurrent [Unknown]
  - Suspected product contamination [Unknown]

NARRATIVE: CASE EVENT DATE: 20200101
